FAERS Safety Report 15449515 (Version 2)
Quarter: 2018Q4

REPORT INFORMATION
  Report Type: Report from Study
  Country: JP (occurrence: JP)
  Receive Date: 20181001
  Receipt Date: 20181206
  Transmission Date: 20190204
  Serious: No
  Sender: FDA-Public Use
  Company Number: JP-ALEXION PHARMACEUTICALS INC.-A201812374

PATIENT
  Age: 39 Year
  Sex: Male
  Weight: 69 kg

DRUGS (9)
  1. PRIMOBOLAN                         /00044802/ [Concomitant]
     Indication: PAROXYSMAL NOCTURNAL HAEMOGLOBINURIA
     Dosage: 20 MG, DAILY
     Route: 065
     Dates: start: 20150101, end: 20151110
  2. CLARITH [Concomitant]
     Active Substance: CLARITHROMYCIN
     Indication: HELICOBACTER INFECTION
     Dosage: 400 MG, DAILY
     Route: 065
     Dates: start: 20150917, end: 20150923
  3. MIYA-BM [Concomitant]
     Active Substance: CLOSTRIDIUM BUTYRICUM SPORES STRAIN M-55
     Indication: HELICOBACTER INFECTION
     Dosage: 2 DF, DAILY
     Route: 048
     Dates: start: 20150917, end: 20150923
  4. SOLIRIS [Suspect]
     Active Substance: ECULIZUMAB
     Indication: PAROXYSMAL NOCTURNAL HAEMOGLOBINURIA
     Dosage: 600 MG, QW
     Route: 042
     Dates: start: 20110610, end: 20110702
  5. SOLIRIS [Suspect]
     Active Substance: ECULIZUMAB
     Dosage: 900 MG, UNK
     Route: 042
     Dates: start: 20110708
  6. PARIET [Concomitant]
     Active Substance: RABEPRAZOLE SODIUM
     Indication: PAROXYSMAL NOCTURNAL HAEMOGLOBINURIA
     Dosage: 10 MG, DAILY
     Route: 065
     Dates: start: 20150101
  7. PRIMOBOLAN                         /00044802/ [Concomitant]
     Dosage: 10 MG, DAILY
     Route: 065
     Dates: start: 20151111
  8. DRUG NOT ADMINISTERED [Concomitant]
     Active Substance: UNSPECIFIED INGREDIENT
     Indication: HELICOBACTER INFECTION
     Dosage: 40 MG, DAILY
     Route: 065
     Dates: start: 20150917, end: 20150923
  9. SAWACILLIN [Concomitant]
     Active Substance: AMOXICILLIN
     Indication: HELICOBACTER INFECTION
     Dosage: 1500 MG, DAILY
     Route: 048
     Dates: start: 20150917, end: 20150923

REACTIONS (2)
  - Inappropriate schedule of product administration [Unknown]
  - Nasopharyngitis [Recovered/Resolved]

NARRATIVE: CASE EVENT DATE: 20150821
